FAERS Safety Report 9801814 (Version 3)
Quarter: 2014Q1

REPORT INFORMATION
  Report Type: Spontaneous
  Country: US (occurrence: US)
  Receive Date: 20140107
  Receipt Date: 20140205
  Transmission Date: 20141002
  Serious: Yes (Hospitalization)
  Sender: FDA-Public Use
  Company Number: US-TEVA-454598USA

PATIENT
  Sex: Female

DRUGS (4)
  1. CARVEDILOL [Suspect]
     Indication: BLOOD PRESSURE
     Dosage: 12.5 MILLIGRAM DAILY;
  2. CARVEDILOL [Suspect]
     Dates: end: 201312
  3. METOPROLOL [Concomitant]
     Dosage: 50 MILLIGRAM DAILY;
  4. CORTISONE [Concomitant]

REACTIONS (11)
  - Cholelithiasis [Recovered/Resolved]
  - Malaise [Recovered/Resolved]
  - Swelling [Recovered/Resolved]
  - Myalgia [Recovered/Resolved]
  - Nausea [Recovered/Resolved]
  - Abdominal distension [Recovered/Resolved]
  - Gastrointestinal pain [Recovered/Resolved]
  - Headache [Recovered/Resolved]
  - Ear pain [Recovered/Resolved]
  - Agitation [Recovered/Resolved]
  - Blood pressure increased [Recovered/Resolved]
